FAERS Safety Report 5145022-0 (Version None)
Quarter: 2006Q4

REPORT INFORMATION
  Report Type: 
  Country: None (occurrence: None)
  Receive Date: 20060914
  Receipt Date: 20060626
  Transmission Date: 20070319
  Serious: Yes (Other)
  Sender: FDA-Public Use
  Company Number: PHEH2006US08307

PATIENT
  Sex: Female

DRUGS (2)
  1. DIOVAN [Suspect]
     Indication: HYPERTENSION
     Dosage: 80MG, QD, ORAL
     Route: 048
     Dates: start: 20060615
  2. ATENOLOL [Suspect]

REACTIONS (2)
  - FATIGUE [None]
  - HYPOTENSION [None]
